FAERS Safety Report 9974924 (Version 1)
Quarter: 2014Q1

REPORT INFORMATION
  Report Type: Report from Study
  Country: US (occurrence: US)
  Receive Date: 20140306
  Receipt Date: 20140306
  Transmission Date: 20141002
  Serious: No
  Sender: FDA-Public Use
  Company Number: US-ABBVIE-13P-163-1157694-00

PATIENT
  Age: 40 Year
  Sex: Female

DRUGS (7)
  1. HUMIRA [Suspect]
     Indication: CROHN^S DISEASE
     Dates: start: 20130909
  2. GABAPENTIN [Concomitant]
     Indication: FIBROMYALGIA
  3. ASACOL [Concomitant]
     Indication: CROHN^S DISEASE
     Dosage: 400 MG DAILY
  4. HYDROXYZINE [Concomitant]
     Indication: ANXIETY
     Dosage: AT BEDTIME AND AS NEEDED
  5. BACLOFEN [Concomitant]
     Indication: INTERVERTEBRAL DISC PROTRUSION
  6. DILANTIN [Concomitant]
     Indication: CONVULSION
     Dosage: 300 MG DAILY
  7. AMITRIPTYLINE [Concomitant]
     Indication: MIGRAINE

REACTIONS (2)
  - Injection site pain [Recovered/Resolved]
  - Injection site bruising [Recovered/Resolved]
